FAERS Safety Report 15630172 (Version 1)
Quarter: 2018Q4

REPORT INFORMATION
  Report Type: Spontaneous
  Country: US (occurrence: US)
  Receive Date: 20181112
  Receipt Date: 20181112
  Transmission Date: 20190205
  Serious: Yes (Other)
  Sender: FDA-Public Use
  Company Number: None

PATIENT
  Age: 67 Year
  Sex: Male

DRUGS (1)
  1. EPOPROSTENOL SODIUM. [Suspect]
     Active Substance: EPOPROSTENOL SODIUM
     Indication: KYPHOSCOLIOTIC HEART DISEASE
     Dosage: ?          OTHER FREQUENCY:CONTINOUSLY ;?
     Route: 042
     Dates: start: 20180823

REACTIONS (1)
  - Malaise [None]

NARRATIVE: CASE EVENT DATE: 20181105
